FAERS Safety Report 11611333 (Version 1)
Quarter: 2015Q4

REPORT INFORMATION
  Report Type: Report from Study
  Country: US (occurrence: US)
  Receive Date: 20151008
  Receipt Date: 20151008
  Transmission Date: 20160304
  Serious: No
  Sender: FDA-Public Use
  Company Number: US-AMGEN-USASL2015102535

PATIENT
  Age: 20 Year
  Sex: Female

DRUGS (1)
  1. ENBREL [Suspect]
     Active Substance: ETANERCEPT
     Indication: JUVENILE IDIOPATHIC ARTHRITIS
     Dosage: 50 MG, QWK
     Route: 065
     Dates: start: 2015, end: 2015

REACTIONS (6)
  - Skin ulcer [Unknown]
  - Tendon calcification [Unknown]
  - Gout [Unknown]
  - Gait disturbance [Unknown]
  - Blood calcium increased [Unknown]
  - Calcinosis [Unknown]

NARRATIVE: CASE EVENT DATE: 2015
